FAERS Safety Report 9929176 (Version 1)
Quarter: 2014Q1

REPORT INFORMATION
  Report Type: Report from Study
  Country: BR (occurrence: BR)
  Receive Date: 20140227
  Receipt Date: 20140227
  Transmission Date: 20141002
  Serious: Yes (Disabling)
  Sender: FDA-Public Use
  Company Number: PHHY2014BR021948

PATIENT
  Sex: Male
  Weight: 58 kg

DRUGS (4)
  1. SANDOSTATIN LAR [Suspect]
     Indication: ACROMEGALY
     Dosage: 30 MG, EVERY 28 DAYS
     Dates: start: 200806
  2. PURAN T4 [Concomitant]
     Indication: THYROID DISORDER
     Dosage: 1 DF, IN THE MORNING
     Dates: start: 2008
  3. METICORTEN [Concomitant]
     Dosage: 0.5 DF, UNK
     Dates: start: 2008
  4. DDAVP//DESMOPRESSIN ACETATE [Concomitant]
     Indication: DIABETES MELLITUS
     Dosage: UNK UKN, UNK
     Dates: start: 2008

REACTIONS (8)
  - General physical health deterioration [Unknown]
  - Retching [Not Recovered/Not Resolved]
  - Malaise [Unknown]
  - Dizziness [Recovering/Resolving]
  - Asthenia [Not Recovered/Not Resolved]
  - Abdominal pain upper [Recovering/Resolving]
  - Vomiting [Unknown]
  - Headache [Unknown]
